FAERS Safety Report 15366707 (Version 1)
Quarter: 2018Q3

REPORT INFORMATION
  Report Type: Report from Study
  Country: US (occurrence: US)
  Receive Date: 20180910
  Receipt Date: 20180910
  Transmission Date: 20181010
  Serious: Yes (Other)
  Sender: FDA-Public Use
  Company Number: US-UCBSA-2018037172

PATIENT
  Sex: Female

DRUGS (1)
  1. LEVETIRACETAM. [Suspect]
     Active Substance: LEVETIRACETAM
     Indication: PRODUCT USED FOR UNKNOWN INDICATION
     Dosage: UNK

REACTIONS (9)
  - Neuropathy peripheral [Unknown]
  - Cystitis [Unknown]
  - Herpes zoster [Unknown]
  - Dyspepsia [Unknown]
  - Hepatic failure [Unknown]
  - Drug ineffective [Unknown]
  - Epilepsy [Unknown]
  - Depression [Unknown]
  - Abnormal behaviour [Unknown]
